FAERS Safety Report 25227117 (Version 2)
Quarter: 2025Q2

REPORT INFORMATION
  Report Type: Spontaneous
  Country: US (occurrence: US)
  Receive Date: 20250422
  Receipt Date: 20250501
  Transmission Date: 20250717
  Serious: Yes (Other)
  Sender: PFIZER
  Company Number: US-PFIZER INC-PV202500046012

PATIENT
  Age: 69 Year
  Sex: Female
  Weight: 48.073 kg

DRUGS (17)
  1. CARBOPLATIN [Suspect]
     Active Substance: CARBOPLATIN
     Indication: Lung adenocarcinoma stage IV
  2. CARBOPLATIN [Suspect]
     Active Substance: CARBOPLATIN
     Indication: Metastases to central nervous system
  3. CARBOPLATIN [Suspect]
     Active Substance: CARBOPLATIN
     Indication: Metastases to spine
  4. CARBOPLATIN [Suspect]
     Active Substance: CARBOPLATIN
     Indication: Metastases to bone
  5. PEMETREXED [Suspect]
     Active Substance: PEMETREXED
     Indication: Lung adenocarcinoma stage IV
  6. PEMETREXED [Suspect]
     Active Substance: PEMETREXED
     Indication: Metastases to central nervous system
  7. PEMETREXED [Suspect]
     Active Substance: PEMETREXED
     Indication: Metastases to spine
  8. PEMETREXED [Suspect]
     Active Substance: PEMETREXED
     Indication: Metastases to bone
  9. ETHOSUXIMIDE [Concomitant]
     Active Substance: ETHOSUXIMIDE
     Indication: Seizure
     Dosage: 500 MG, 2X/DAY
  10. ESTRADIOL [Concomitant]
     Active Substance: ESTRADIOL
     Route: 067
  11. LEVETIRACETAM [Concomitant]
     Active Substance: LEVETIRACETAM
     Indication: Seizure
     Dosage: 1000 MG, 2X/DAY
  12. PHENYTOIN [Concomitant]
     Active Substance: PHENYTOIN
     Indication: Seizure
     Dosage: WITH HIGHER DOSING 1-2 TIMES WEEKLY PERIODICALLY DURING HER COURSE
  13. OSIMERTINIB [Concomitant]
     Active Substance: OSIMERTINIB
     Indication: Metastases to spine
     Dosage: STANDARD DOSE 80 MG DAILY
  14. OSIMERTINIB [Concomitant]
     Active Substance: OSIMERTINIB
     Indication: Metastases to central nervous system
     Dosage: 80 MG, DAILY
  15. OSIMERTINIB [Concomitant]
     Active Substance: OSIMERTINIB
     Indication: Metastases to spine
     Dosage: 160 MG, DAILY
  16. OSIMERTINIB [Concomitant]
     Active Substance: OSIMERTINIB
     Indication: Metastases to bone
  17. UNSPECIFIED INGREDIENT [Concomitant]
     Active Substance: UNSPECIFIED INGREDIENT
     Dosage: 1.5 MG/KG, DAILY

REACTIONS (7)
  - Pulmonary embolism [Recovered/Resolved]
  - Cytopenia [Unknown]
  - Fatigue [Unknown]
  - Decreased appetite [Unknown]
  - Off label use [Unknown]
  - Off label use [Unknown]
  - Product use issue [Unknown]
